FAERS Safety Report 23048762 (Version 1)
Quarter: 2023Q4

REPORT INFORMATION
  Report Type: Other
  Country: US (occurrence: US)
  Receive Date: 20231010
  Receipt Date: 20231010
  Transmission Date: 20240110
  Serious: Yes (Hospitalization)
  Sender: FDA-Public Use
  Company Number: US-Bion-012179

PATIENT
  Age: 69 Year
  Sex: Female

DRUGS (3)
  1. KETOROLAC TROMETHAMINE [Suspect]
     Active Substance: KETOROLAC TROMETHAMINE
     Indication: Suicide attempt
  2. IVERMECTIN [Concomitant]
     Active Substance: IVERMECTIN
     Indication: Suicide attempt
  3. ZOLPIDEM [Concomitant]
     Active Substance: ZOLPIDEM TARTRATE
     Indication: Suicide attempt

REACTIONS (2)
  - Intentional product misuse [Unknown]
  - Suicide attempt [Unknown]
